FAERS Safety Report 22304847 (Version 1)
Quarter: 2023Q2

REPORT INFORMATION
  Report Type: Spontaneous
  Country: US (occurrence: US)
  Receive Date: 20230510
  Receipt Date: 20230510
  Transmission Date: 20230721
  Serious: No
  Sender: FDA-Public Use
  Company Number: US-PFIZER INC-202300181399

PATIENT
  Sex: Female

DRUGS (1)
  1. XELJANZ XR [Suspect]
     Active Substance: TOFACITINIB CITRATE
     Dosage: 11 MG, DAILY (11MG TABLET (30^S) TAKE 1 TABLET BY MOUTH DAILY)
     Route: 048
     Dates: start: 2018

REACTIONS (2)
  - Inflammatory marker increased [Not Recovered/Not Resolved]
  - Drug ineffective [Not Recovered/Not Resolved]
